FAERS Safety Report 5709077-4 (Version None)
Quarter: 2008Q2

REPORT INFORMATION
  Report Type: 
  Country: None (occurrence: None)
  Receive Date: 20080418
  Receipt Date: 20080409
  Transmission Date: 20081010
  Serious: Yes (Other)
  Sender: FDA-Public Use
  Company Number: US-JNJFOC-20080403185

PATIENT
  Sex: Female
  Weight: 122.47 kg

DRUGS (5)
  1. FENTANYL TRANSDERMAL SYSTEM [Suspect]
     Indication: NEUROPATHY PERIPHERAL
     Dosage: 1X 100UG/HR AND 1X 25 UG/HR PATCHES
     Route: 062
  2. DURAGESIC-100 [Suspect]
     Indication: NEUROPATHY PERIPHERAL
     Route: 062
  3. NEURONTIN [Concomitant]
     Indication: NEUROPATHY PERIPHERAL
     Route: 048
  4. VITAMIN B6 [Concomitant]
     Indication: MEDICAL DIET
     Route: 060
  5. FOLIC ACID [Concomitant]
     Indication: MEDICAL DIET
     Route: 048

REACTIONS (7)
  - BLOOD CHOLESTEROL [None]
  - DEPRESSION [None]
  - DIABETES MELLITUS [None]
  - GASTROOESOPHAGEAL REFLUX DISEASE [None]
  - HYPERTENSION [None]
  - HYPOTHYROIDISM [None]
  - WRONG TECHNIQUE IN DRUG USAGE PROCESS [None]
